FAERS Safety Report 15858161 (Version 1)
Quarter: 2019Q1

REPORT INFORMATION
  Report Type: Spontaneous
  Country: US (occurrence: US)
  Receive Date: 20190121
  Receipt Date: 20190121
  Transmission Date: 20190417
  Serious: No
  Sender: FDA-Public Use
  Company Number: None

PATIENT

DRUGS (3)
  1. CARVEDLLOL [Concomitant]
     Active Substance: CARVEDILOL
  2. CYCLOPHOSPHAMIDE CAP 25MG [Suspect]
     Active Substance: CYCLOPHOSPHAMIDE
     Route: 048
  3. LEVOTHYROXINE. [Concomitant]
     Active Substance: LEVOTHYROXINE

REACTIONS (2)
  - Vomiting [None]
  - Nausea [None]
